FAERS Safety Report 7245030-X (Version None)
Quarter: 2011Q1

REPORT INFORMATION
  Report Type: 
  Country: None (occurrence: None)
  Receive Date: 20110126
  Receipt Date: 20110118
  Transmission Date: 20110831
  Serious: Yes (Life-Threatening, Hospitalization)
  Sender: FDA-Public Use
  Company Number: JP-SANOFI-AVENTIS-2010SA013375

PATIENT
  Age: 87 Year
  Sex: Female

DRUGS (2)
  1. LASIX [Suspect]
     Route: 048
     Dates: start: 20091214, end: 20091223
  2. GLYCYRRHIZIC ACID [Suspect]
     Indication: DEMENTIA
     Route: 048
     Dates: end: 20091223

REACTIONS (4)
  - HYPOKALAEMIA [None]
  - GRAND MAL CONVULSION [None]
  - HYPOCALCAEMIA [None]
  - HYPOMAGNESAEMIA [None]
